FAERS Safety Report 9765200 (Version 1)
Quarter: 2013Q4

REPORT INFORMATION
  Report Type: Spontaneous
  Country: US (occurrence: US)
  Receive Date: 20131217
  Receipt Date: 20131217
  Transmission Date: 20140711
  Serious: No
  Sender: FDA-Public Use
  Company Number: US-GLAXOSMITHKLINE-A1025070A

PATIENT
  Age: 56 Year
  Sex: Female

DRUGS (2)
  1. SORIATANE [Suspect]
     Indication: SQUAMOUS CELL CARCINOMA
     Dosage: 25MG PER DAY
     Route: 048
     Dates: start: 20130424
  2. DIOVAN HCTZ [Concomitant]

REACTIONS (5)
  - Skin exfoliation [Unknown]
  - Blister [Unknown]
  - Cheilitis [Unknown]
  - Lip dry [Unknown]
  - Skin exfoliation [Unknown]
